FAERS Safety Report 5895103-9 (Version None)
Quarter: 2008Q3

REPORT INFORMATION
  Report Type: 
  Country: None (occurrence: None)
  Receive Date: 20080924
  Receipt Date: 20080911
  Transmission Date: 20090109
  Serious: Yes (Hospitalization, Other)
  Sender: FDA-Public Use
  Company Number: GB-PFIZER INC-2008064502

PATIENT
  Sex: Male
  Weight: 76.2 kg

DRUGS (3)
  1. LYRICA [Suspect]
     Indication: SPINAL COLUMN STENOSIS
     Route: 048
     Dates: start: 20080726, end: 20080726
  2. LYRICA [Suspect]
     Indication: BACK PAIN
  3. TRAMADOL HCL [Suspect]
     Route: 048

REACTIONS (8)
  - CHEST DISCOMFORT [None]
  - DIZZINESS [None]
  - HYPERHIDROSIS [None]
  - MALAISE [None]
  - PAIN [None]
  - PRESYNCOPE [None]
  - TACHYCARDIA [None]
  - TREMOR [None]
